FAERS Safety Report 4865031-6 (Version None)
Quarter: 2005Q4

REPORT INFORMATION
  Report Type: 
  Country: None (occurrence: None)
  Receive Date: 20051219
  Receipt Date: 20051207
  Transmission Date: 20060501
  Serious: Yes (Other)
  Sender: FDA-Public Use
  Company Number: SE-2005-026803

PATIENT
  Sex: Female

DRUGS (1)
  1. LEVONORGESTREL(LEVONORGESTREL) IUS [Suspect]
     Dosage: 20 UG/DAY, CONT, INTRA-UTERINE
     Route: 015

REACTIONS (1)
  - PITUITARY TUMOUR BENIGN [None]
